FAERS Safety Report 17605823 (Version 3)
Quarter: 2020Q3

REPORT INFORMATION
  Report Type: Spontaneous
  Country: AU (occurrence: AU)
  Receive Date: 20200331
  Receipt Date: 20200706
  Transmission Date: 20201102
  Serious: Yes (Death)
  Sender: FDA-Public Use
  Company Number: AU-BIOVITRUM-2020AU1585

PATIENT
  Age: 1 Year
  Sex: Female
  Weight: 13 kg

DRUGS (3)
  1. ANAKINRA [Suspect]
     Active Substance: ANAKINRA
     Indication: STATUS EPILEPTICUS
     Dosage: 3 DOSES
     Route: 058
     Dates: start: 20180209, end: 20180213
  2. ANAKINRA [Suspect]
     Active Substance: ANAKINRA
     Indication: FEBRILE INFECTION-RELATED EPILEPSY SYNDROME
     Dosage: 3 DOSES
     Route: 058
     Dates: start: 20180211, end: 20180213
  3. ANAKINRA [Suspect]
     Active Substance: ANAKINRA
     Dosage: 3 DOSES
     Route: 058
     Dates: start: 20180213, end: 20180213

REACTIONS (3)
  - Enterovirus infection [Fatal]
  - Off label use [Unknown]
  - Drug ineffective [Fatal]

NARRATIVE: CASE EVENT DATE: 20180209
